FAERS Safety Report 8988145 (Version 1)
Quarter: 2012Q4

REPORT INFORMATION
  Report Type: 
  Country: JP (occurrence: JP)
  Receive Date: 20121227
  Receipt Date: 20121227
  Transmission Date: 20130627
  Serious: Yes (Other)
  Sender: FDA-Public Use
  Company Number: JP-BRISTOL-MYERS SQUIBB COMPANY-17239724

PATIENT

DRUGS (3)
  1. ABILIFY [Suspect]
     Route: 048
  2. MEMANTINE HCL [Concomitant]
     Dosage: Tablet
  3. ARICEPT [Concomitant]

REACTIONS (2)
  - Convulsion [Unknown]
  - Loss of consciousness [Unknown]
